FAERS Safety Report 6523892-9 (Version None)
Quarter: 2009Q4

REPORT INFORMATION
  Report Type: 
  Country: None (occurrence: None)
  Receive Date: 20091230
  Receipt Date: 20091230
  Transmission Date: 20100525
  Serious: Yes (Hospitalization)
  Sender: FDA-Public Use
  Company Number: None

PATIENT
  Sex: Female
  Weight: 52.6 kg

DRUGS (9)
  1. INSULIN GLARGINE 100 UNITS/ ML [Suspect]
     Indication: TYPE 2 DIABETES MELLITUS
     Dosage: 20 UNITS QAM
  2. LISPRO 100 UNITS/ML [Suspect]
     Indication: TYPE 2 DIABETES MELLITUS
     Dosage: PRN
  3. CALCIUM/VITAMIN D [Concomitant]
  4. DIPYRIDAMOLE [Concomitant]
  5. FEXOFENADINE [Concomitant]
  6. METOPROLOL TARTRATE [Concomitant]
  7. SIMVASTATIN [Concomitant]
  8. ADVAIR DISKUS 100/50 [Concomitant]
  9. SPIRIVA [Concomitant]

REACTIONS (3)
  - DIZZINESS [None]
  - HYPOGLYCAEMIA [None]
  - SYNCOPE [None]
